FAERS Safety Report 19407196 (Version 2)
Quarter: 2021Q2

REPORT INFORMATION
  Report Type: Spontaneous
  Country: CZ (occurrence: CZ)
  Receive Date: 20210611
  Receipt Date: 20210623
  Transmission Date: 20210717
  Serious: Yes (Hospitalization, Disabling, Other)
  Sender: FDA-Public Use
  Company Number: NVSC2021CZ130181

PATIENT
  Age: 86 Year
  Sex: Female

DRUGS (50)
  1. DONEPEZIL HYDROCHLORIDE. [Interacting]
     Active Substance: DONEPEZIL HYDROCHLORIDE
     Indication: PRODUCT USED FOR UNKNOWN INDICATION
     Dosage: UNK
     Route: 065
  2. PREGABALIN. [Interacting]
     Active Substance: PREGABALIN
     Indication: POST HERPETIC NEURALGIA
     Dosage: UNK
     Route: 048
  3. CAPTOPRIL. [Suspect]
     Active Substance: CAPTOPRIL
     Indication: HYPERTENSION
     Dosage: UNK
     Route: 065
  4. CARDILAN [NICOFURANOSE] [Interacting]
     Active Substance: NICOFURANOSE
     Indication: PRODUCT USED FOR UNKNOWN INDICATION
     Dosage: UNK, QD
     Route: 065
  5. HYPNOGEN [Interacting]
     Active Substance: ZOLPIDEM TARTRATE
     Indication: DRUG ABUSE
     Dosage: UNK
     Route: 065
  6. ROSUCARD [Interacting]
     Active Substance: ROSUVASTATIN CALCIUM
     Indication: PRODUCT USED FOR UNKNOWN INDICATION
     Dosage: 20 MG, QD (DOSE: 0?0?1)
     Route: 048
  7. CONTROLOC [Interacting]
     Active Substance: PANTOPRAZOLE SODIUM
     Dosage: 10 MG
     Route: 048
  8. CALCICHEW D3 [Interacting]
     Active Substance: CALCIUM\CHOLECALCIFEROL
     Indication: CALCIUM DEFICIENCY
     Dosage: 1 DF, QD (DOSE: 0?0?1)
     Route: 048
  9. TRAZODONE [Suspect]
     Active Substance: TRAZODONE HYDROCHLORIDE
     Indication: PRODUCT USED FOR UNKNOWN INDICATION
     Dosage: UNK
     Route: 065
  10. PANADOL [Interacting]
     Active Substance: ACETAMINOPHEN
     Indication: PAIN
     Dosage: 750 MG, QD
     Route: 048
     Dates: start: 2015
  11. TEZEO [Interacting]
     Active Substance: TELMISARTAN
     Indication: HYPERTENSION
     Dosage: 1 DF, QD (STRENGTH: 80/12.5 MG DOSE: 1?0?0)
     Route: 048
  12. ELIQUIS [Interacting]
     Active Substance: APIXABAN
     Indication: ANTICOAGULANT THERAPY
     Dosage: 5 MG, Q12H (DOSE: 1?0?1)
     Route: 048
  13. ORAMELLOX [Interacting]
     Active Substance: MELOXICAM
     Indication: POST HERPETIC NEURALGIA
     Dosage: 1 DF, QW
     Route: 065
     Dates: start: 2015
  14. GUAJACURAN [Suspect]
     Active Substance: GUAIFENESIN
     Indication: PRODUCT USED FOR UNKNOWN INDICATION
     Dosage: UNK
     Route: 065
  15. NOVALGIN (CAFFEINE/PARACETAMOL/PROPYPHENAZONE) [Interacting]
     Active Substance: ACETAMINOPHEN\CAFFEINE\PROPYPHENAZONE
     Indication: HYPERTENSION
     Dosage: 500 MG, Q12H (DOSE: 1?0?1)
     Route: 065
  16. CONDROSULF [Interacting]
     Active Substance: SODIUM CHONDROITIN SULFATE
     Indication: RHEUMATOID ARTHRITIS
     Dosage: 800 MG, QD (DOSE: 0?0?1)
     Route: 048
  17. AGEN [Interacting]
     Active Substance: AMLODIPINE BESYLATE
     Indication: HYPERTENSION
     Dosage: 5 MG, QD (DOSE: 1?0?0)
     Route: 048
  18. RAMIPRIL. [Interacting]
     Active Substance: RAMIPRIL
     Indication: PRODUCT USED FOR UNKNOWN INDICATION
     Dosage: UNK
     Route: 065
  19. TEZEO [Interacting]
     Active Substance: TELMISARTAN
     Dosage: UNK, QD (80/12.5 MG TBL)
     Route: 048
  20. BETALOC ZOK [Interacting]
     Active Substance: METOPROLOL SUCCINATE
     Indication: HYPERTENSION
     Dosage: 25 MG, QD (DOSE: 1?0?0)
     Route: 048
  21. TEZEO HCT [Suspect]
     Active Substance: HYDROCHLOROTHIAZIDE\TELMISARTAN
     Indication: PRODUCT USED FOR UNKNOWN INDICATION
     Dosage: 1 DF, QD (1?0?0; 12.5 MG/80 MG)
     Route: 048
  22. ORAMELLOX [Interacting]
     Active Substance: MELOXICAM
     Dosage: 15 MG, QW (1 TBL IF PAIN, APP. 3 TIMES A WEEK)
     Route: 048
     Dates: start: 2015
  23. EUTHYROX [Interacting]
     Active Substance: LEVOTHYROXINE SODIUM
     Indication: AUTOIMMUNE THYROIDITIS
     Dosage: 100 UG, QD
     Route: 065
  24. GUTTALAX [SODIUM PICOSULFATE] [Interacting]
     Active Substance: SODIUM PICOSULFATE
     Indication: CONSTIPATION
     Dosage: 1 DF (1DF=10?20 GUTTES)
     Route: 065
  25. DUROGESIC [Interacting]
     Active Substance: FENTANYL
     Indication: PAIN
     Dosage: 25 UG, QH (25 MICROGRAM/H A 72 HOURS)
     Route: 062
     Dates: start: 2015
  26. CARDILAN [MAGNESIUM ASPARTATE/POTASSIUM ASPARTATE] [Interacting]
     Active Substance: MAGNESIUM ASPARTATE\POTASSIUM ASPARTATE
     Indication: PRODUCT USED FOR UNKNOWN INDICATION
     Dosage: 1 DF, QD (0?1?0)
     Route: 048
  27. METHOTREXATE SODIUM. [Suspect]
     Active Substance: METHOTREXATE SODIUM
     Indication: RHEUMATOID ARTHRITIS
     Dosage: 10 MG, QW (1?0?0 (SUNDAY)
     Route: 048
     Dates: start: 2010
  28. OXAZEPAM. [Interacting]
     Active Substance: OXAZEPAM
     Indication: DRUG ABUSE
     Dosage: UNK
     Route: 065
  29. TRAMADOL. [Interacting]
     Active Substance: TRAMADOL
     Indication: PRODUCT USED FOR UNKNOWN INDICATION
     Dosage: UNK
     Route: 065
  30. POTASSIUM ASPARTATE [Interacting]
     Active Substance: POTASSIUM ASPARTATE
     Indication: PRODUCT USED FOR UNKNOWN INDICATION
     Dosage: UNK
     Route: 065
  31. STILNOX [Interacting]
     Active Substance: ZOLPIDEM TARTRATE
     Indication: DRUG ABUSE
     Dosage: UNK
     Route: 065
  32. ACIDUM FOLICUM [Interacting]
     Active Substance: FOLIC ACID
     Indication: PRODUCT USED FOR UNKNOWN INDICATION
     Dosage: 1 DF, QD (1?0?0 ON MONDAY)
     Route: 048
  33. NICOFURANOSE. [Interacting]
     Active Substance: NICOFURANOSE
     Indication: ENCEPHALOPATHY
     Dosage: UNK, QD (DOSE: 0?1?0)
     Route: 048
  34. PREDNISON LECIVA [Interacting]
     Active Substance: PREDNISONE
     Indication: STEROID THERAPY
     Dosage: UNK, QD
     Route: 065
  35. CORDARONE [Interacting]
     Active Substance: AMIODARONE HYDROCHLORIDE
     Indication: ATRIAL FIBRILLATION
     Dosage: 200 MG, QD (DOSE: 1?0?0)
     Route: 048
  36. EUTHYROX [Interacting]
     Active Substance: LEVOTHYROXINE SODIUM
     Indication: HYPERTHYROIDISM
  37. DUROGESIC [Interacting]
     Active Substance: FENTANYL
     Indication: POST HERPETIC NEURALGIA
  38. OMEPRAZOLE. [Interacting]
     Active Substance: OMEPRAZOLE
     Indication: PRODUCT USED FOR UNKNOWN INDICATION
     Dosage: UNK
     Route: 065
  39. ALPRAZOLAM. [Suspect]
     Active Substance: ALPRAZOLAM
     Indication: HYPERTENSION
     Dosage: UNK
     Route: 065
  40. DUROGESIC [Interacting]
     Active Substance: FENTANYL
     Indication: POST HERPETIC NEURALGIA
     Dosage: 25 UG, Q72H
     Route: 062
     Dates: start: 2015
  41. DUROGESIC [Interacting]
     Active Substance: FENTANYL
     Indication: PAIN
  42. MAGNESIUM ASPARTATE [Interacting]
     Active Substance: MAGNESIUM ASPARTATE
     Indication: PRODUCT USED FOR UNKNOWN INDICATION
     Dosage: UNK
     Route: 065
  43. PANADOL [Interacting]
     Active Substance: ACETAMINOPHEN
     Dosage: 1.5 DF (1.5 TABLETS 3?4 TIMES A DAY)
     Route: 065
  44. IBALGIN [Interacting]
     Active Substance: IBUPROFEN
     Indication: PAIN
     Dosage: UNK
     Route: 065
  45. PREDNISON LECIVA [Interacting]
     Active Substance: PREDNISONE
     Dosage: 5 MG, QD (DOSE: 1?0?0)
     Route: 048
  46. METAMIZOLE [Interacting]
     Active Substance: METAMIZOLE
     Indication: POST HERPETIC NEURALGIA
     Dosage: 500 MG, QD (1?0?1)
     Route: 048
     Dates: start: 2015
  47. METAMIZOLE [Interacting]
     Active Substance: METAMIZOLE
     Indication: HYPERTENSION
  48. ORAMELLOX [Interacting]
     Active Substance: MELOXICAM
     Indication: PAIN
     Dosage: 15 MG, Q3W (STRENGTH: 15 MG TAKEN APPROX. 3 TIMES PER WEEK)
     Route: 048
  49. CONTROLOC [Interacting]
     Active Substance: PANTOPRAZOLE SODIUM
     Indication: NAUSEA
     Dosage: 20 MG, QD (DOSE: 1?0?0)
     Route: 048
  50. FENTANYL CITRATE. [Suspect]
     Active Substance: FENTANYL CITRATE
     Indication: PRODUCT USED FOR UNKNOWN INDICATION
     Dosage: UNK
     Route: 065

REACTIONS (36)
  - Fall [Recovered/Resolved]
  - Confusional state [Recovered/Resolved]
  - Cognitive disorder [Recovered/Resolved]
  - Liver function test abnormal [Recovered/Resolved]
  - General physical health deterioration [Recovering/Resolving]
  - Atrial fibrillation [Recovered/Resolved]
  - Condition aggravated [Recovered/Resolved]
  - Liver function test increased [Recovered/Resolved]
  - Oxygen saturation decreased [Recovered/Resolved]
  - Reduced facial expression [Recovered/Resolved]
  - Intentional product misuse [Unknown]
  - Dehydration [Recovered/Resolved]
  - Hypertension [Recovering/Resolving]
  - Nausea [Recovered/Resolved]
  - Pelvic fracture [Recovering/Resolving]
  - Drug abuse [Recovering/Resolving]
  - Anxiety [Recovered/Resolved]
  - Discomfort [Recovered/Resolved]
  - Incorrect dose administered [Unknown]
  - Medication error [Unknown]
  - Sleep disorder [Recovering/Resolving]
  - Drug interaction [Recovered/Resolved]
  - Vertigo [Recovered/Resolved]
  - Urinary retention [Recovered/Resolved]
  - Affect lability [Recovered/Resolved]
  - Concomitant disease aggravated [Recovering/Resolving]
  - Hypokalaemia [Recovered/Resolved]
  - Apathy [Recovered/Resolved]
  - Head discomfort [Recovered/Resolved]
  - Listless [Recovering/Resolving]
  - Hyponatraemia [Recovered/Resolved]
  - Restlessness [Recovering/Resolving]
  - Cognitive disorder [Recovered/Resolved]
  - Delirium [Recovered/Resolved]
  - Encephalopathy [Recovering/Resolving]
  - Mobility decreased [Recovered/Resolved]

NARRATIVE: CASE EVENT DATE: 2018
